FAERS Safety Report 17167072 (Version 3)
Quarter: 2020Q1

REPORT INFORMATION
  Report Type: Spontaneous
  Country: JP (occurrence: JP)
  Receive Date: 20191217
  Receipt Date: 20200128
  Transmission Date: 20200409
  Serious: Yes (Other)
  Sender: FDA-Public Use
  Company Number: JP-009507513-1912JPN001972J

PATIENT
  Age: 76 Year
  Sex: Male

DRUGS (1)
  1. KEYTRUDA [Suspect]
     Active Substance: PEMBROLIZUMAB
     Indication: NON-SMALL CELL LUNG CANCER
     Dosage: UNK
     Route: 041

REACTIONS (4)
  - Psoriasis [Recovering/Resolving]
  - Immune-mediated neuropathy [Recovering/Resolving]
  - Muscular weakness [Recovering/Resolving]
  - Arthralgia [Recovering/Resolving]
